FAERS Safety Report 5899356-2 (Version None)
Quarter: 2008Q3

REPORT INFORMATION
  Report Type: 
  Country: None (occurrence: None)
  Receive Date: 20080925
  Receipt Date: 20080917
  Transmission Date: 20090109
  Serious: Yes (Hospitalization)
  Sender: FDA-Public Use
  Company Number: US-AMGEN-QUU308419

PATIENT
  Sex: Male

DRUGS (2)
  1. ENBREL [Suspect]
     Indication: RHEUMATOID ARTHRITIS
     Route: 058
     Dates: start: 20050901
  2. ENBREL [Suspect]
     Indication: PSORIASIS

REACTIONS (7)
  - AORTIC ANEURYSM [None]
  - HEAD INJURY [None]
  - HEPATIC FAILURE [None]
  - MYOCARDIAL INFARCTION [None]
  - PYREXIA [None]
  - RENAL FAILURE [None]
  - SYNCOPE [None]
